FAERS Safety Report 5759594-6 (Version None)
Quarter: 2008Q2

REPORT INFORMATION
  Report Type: 
  Country: None (occurrence: None)
  Receive Date: 20080605
  Receipt Date: 20080602
  Transmission Date: 20081010
  Serious: Yes (Hospitalization)
  Sender: FDA-Public Use
  Company Number: GB-ASTRAZENECA-2008GB01024

PATIENT
  Age: 75 Year
  Sex: Male

DRUGS (12)
  1. OMEPRAZOLE [Suspect]
     Indication: HELICOBACTER INFECTION
     Route: 048
     Dates: start: 20080509, end: 20080519
  2. AMOXICILLIN [Suspect]
     Indication: HELICOBACTER INFECTION
     Route: 048
     Dates: start: 20080509, end: 20080516
  3. ASPIRIN [Concomitant]
  4. ATENOLOL [Concomitant]
     Route: 065
  5. BENDROFLUMETHIAZIDE [Concomitant]
  6. CLOPIDOGREL [Concomitant]
  7. ISOSORBIDE MONONITRATE [Concomitant]
  8. LISINOPRIL [Concomitant]
     Indication: ACUTE MYOCARDIAL INFARCTION
     Route: 048
  9. NICORANDIL [Concomitant]
  10. NIFEDIPINE [Concomitant]
  11. SIMVASTATIN [Concomitant]
  12. TEMAZEPAM [Concomitant]

REACTIONS (1)
  - RENAL FAILURE ACUTE [None]
